FAERS Safety Report 6604017-8 (Version None)
Quarter: 2010Q1

REPORT INFORMATION
  Report Type: 
  Country: None (occurrence: None)
  Receive Date: 20100226
  Receipt Date: 20090408
  Transmission Date: 20100710
  Serious: No
  Sender: FDA-Public Use
  Company Number: A0778795A

PATIENT
  Age: 34 Year
  Sex: Female

DRUGS (7)
  1. LAMICTAL CD [Suspect]
     Indication: BIPOLAR DISORDER
     Dosage: 150MG TWICE PER DAY
     Route: 048
     Dates: start: 20081001
  2. LAMOTRIGINE [Suspect]
     Indication: BIPOLAR DISORDER
     Dosage: 150MG TWICE PER DAY
     Route: 048
  3. ZYPREXA [Concomitant]
  4. AMBIEN [Concomitant]
  5. CLARITH [Concomitant]
  6. MULTI-VITAMINS [Concomitant]
  7. CALCIUM [Concomitant]

REACTIONS (1)
  - ALOPECIA [None]
